FAERS Safety Report 5949780-4 (Version None)
Quarter: 2008Q4

REPORT INFORMATION
  Report Type: 
  Country: None (occurrence: None)
  Receive Date: 20081022
  Receipt Date: 20050714
  Transmission Date: 20090506
  Serious: Yes (Hospitalization)
  Sender: FDA-Public Use
  Company Number: SPV1-2005-00010

PATIENT
  Age: 13 Year
  Sex: Male

DRUGS (5)
  1. 489 (LISDEXAMFETAMINE DIMESYLATE)(489 (LISDEXAMFETAMINE DIMESYLATE)(LI [Suspect]
     Indication: ATTENTION DEFICIT/HYPERACTIVITY DISORDER
     Dosage: 70 MG, 1X/DAY:QD, ORAL
     Route: 048
     Dates: start: 20041219, end: 20050617
  2. PROVENTIL /00139501/ (SALBUTAMOL) [Concomitant]
  3. RISPERDAL [Concomitant]
  4. ATIVAN [Concomitant]
  5. ALBUTEROL /00139501/ (SALBUTAMOL) [Concomitant]

REACTIONS (1)
  - MANIA [None]
